FAERS Safety Report 24788227 (Version 1)
Quarter: 2024Q4

REPORT INFORMATION
  Report Type: Spontaneous
  Country: CN (occurrence: CN)
  Receive Date: 20241230
  Receipt Date: 20241230
  Transmission Date: 20250114
  Serious: Yes (Hospitalization, Other)
  Sender: BAXTER
  Company Number: None

PATIENT
  Age: 65 Year
  Sex: Female
  Weight: 59 kg

DRUGS (6)
  1. CYCLOPHOSPHAMIDE [Suspect]
     Active Substance: CYCLOPHOSPHAMIDE
     Indication: Drug therapy
     Dosage: 1.2 G, ONE TIME IN ONE DAY, D1, AS A PART OF R-CHOPE REGIMEN
     Route: 048
     Dates: start: 20241207, end: 20241207
  2. ETOPOSIDE [Suspect]
     Active Substance: ETOPOSIDE
     Indication: Drug therapy
     Dosage: 100 MG, D1, AS A PART OF R-CHOPE REGIMEN
     Route: 048
     Dates: start: 20241207
  3. ETOPOSIDE [Suspect]
     Active Substance: ETOPOSIDE
     Dosage: 50 MG, ONE TIME IN ONE DAY, D4, AS A PART OF R-CHOPE REGIMEN
     Route: 048
     Dates: start: 20241210
  4. RITUXIMAB [Suspect]
     Active Substance: RITUXIMAB
     Indication: Drug therapy
     Dosage: 0.1 G,  ONE TIME IN ONE DAY, D0, AS A PART OF R-CHOPE REGIMEN
     Route: 041
     Dates: start: 20241206, end: 20241206
  5. EPIRUBICIN HYDROCHLORIDE [Suspect]
     Active Substance: EPIRUBICIN HYDROCHLORIDE
     Indication: Symptomatic treatment
     Dosage: 140 MG, ONE TIME IN ONE DAY, D1, AS A PART OF R-CHOPE REGIMEN
     Route: 048
     Dates: start: 20241207, end: 20241207
  6. VINCRISTINE SULFATE [Suspect]
     Active Substance: VINCRISTINE SULFATE
     Indication: Drug therapy
     Dosage: 2 MG, ONE TIME IN ONE DAY, D1, AS A PART OF R-CHOPE REGIMEN
     Route: 048
     Dates: start: 20241207, end: 20241207

REACTIONS (4)
  - Condition aggravated [Unknown]
  - High-grade B-cell lymphoma [Unknown]
  - Myelosuppression [Recovered/Resolved]
  - Hypertension [Unknown]

NARRATIVE: CASE EVENT DATE: 20241215
